FAERS Safety Report 10681333 (Version 1)
Quarter: 2014Q4

REPORT INFORMATION
  Report Type: Spontaneous
  Country: BR (occurrence: BR)
  Receive Date: 20141230
  Receipt Date: 20141230
  Transmission Date: 20150529
  Serious: Yes (Other)
  Sender: FDA-Public Use
  Company Number: BR-ROCHE-1513913

PATIENT
  Age: 75 Year
  Sex: Female

DRUGS (19)
  1. LUCENTIS [Suspect]
     Active Substance: RANIBIZUMAB
     Dosage: 0.06ML/0.6MG
     Route: 050
     Dates: start: 2014
  2. BEVACIZUMAB [Suspect]
     Active Substance: BEVACIZUMAB
     Dosage: 0.08ML/2MG
     Route: 050
     Dates: start: 2007
  3. BEVACIZUMAB [Suspect]
     Active Substance: BEVACIZUMAB
     Dosage: 0.08ML/2MG
     Route: 050
     Dates: start: 20101019
  4. DEXAMETHASONE. [Suspect]
     Active Substance: DEXAMETHASONE
     Indication: AGE-RELATED MACULAR DEGENERATION
     Dosage: 0.1ML/0.4MG
     Route: 050
     Dates: start: 20090923
  5. LUCENTIS [Suspect]
     Active Substance: RANIBIZUMAB
     Dosage: 0.06ML/0.6MG
     Route: 050
     Dates: start: 2009
  6. BEVACIZUMAB [Suspect]
     Active Substance: BEVACIZUMAB
     Indication: AGE-RELATED MACULAR DEGENERATION
     Dosage: 0.08ML/2MG
     Route: 050
     Dates: start: 2005
  7. BEVACIZUMAB [Suspect]
     Active Substance: BEVACIZUMAB
     Dosage: 0.08ML/2MG
     Route: 050
     Dates: start: 2012
  8. BEVACIZUMAB [Suspect]
     Active Substance: BEVACIZUMAB
     Dosage: 0.08ML/2MG
     Route: 050
     Dates: start: 20090923
  9. LUCENTIS [Suspect]
     Active Substance: RANIBIZUMAB
     Dosage: 0.06ML/0.6MG
     Route: 050
     Dates: start: 2012
  10. BEVACIZUMAB [Suspect]
     Active Substance: BEVACIZUMAB
     Dosage: 0.08ML/2MG
     Route: 050
     Dates: start: 2008
  11. TRIAMCINOLONE [Suspect]
     Active Substance: TRIAMCINOLONE
     Indication: AGE-RELATED MACULAR DEGENERATION
     Dosage: 0.1ML/4MG
     Route: 050
     Dates: start: 2006
  12. LUCENTIS [Suspect]
     Active Substance: RANIBIZUMAB
     Indication: AGE-RELATED MACULAR DEGENERATION
     Dosage: 0.06ML/0.6MG
     Route: 050
     Dates: start: 2008
  13. BEVACIZUMAB [Suspect]
     Active Substance: BEVACIZUMAB
     Dosage: 0.08ML/2MG
     Route: 050
     Dates: start: 2006
  14. BEVACIZUMAB [Suspect]
     Active Substance: BEVACIZUMAB
     Dosage: 0.08ML/2MG
     Route: 050
     Dates: start: 2011
  15. LUCENTIS [Suspect]
     Active Substance: RANIBIZUMAB
     Dosage: 0.06ML/0.6MG
     Route: 050
     Dates: start: 2013
  16. BEVACIZUMAB [Suspect]
     Active Substance: BEVACIZUMAB
     Dosage: 0.08ML/2MG
     Route: 050
     Dates: start: 2006
  17. BEVACIZUMAB [Suspect]
     Active Substance: BEVACIZUMAB
     Dosage: 0.08ML/2MG
     Route: 050
     Dates: start: 2010
  18. BEVACIZUMAB [Suspect]
     Active Substance: BEVACIZUMAB
     Dosage: 0.08ML/2MG
     Route: 050
     Dates: start: 20110124
  19. VISUDYNE [Suspect]
     Active Substance: VERTEPORFIN
     Indication: AGE-RELATED MACULAR DEGENERATION
     Dosage: 6.0MG/M2 BODY AREA, FLUENCY OF 600 MW/CM2-USED 9.6MG
     Route: 050
     Dates: start: 2009

REACTIONS (5)
  - Vitreous loss [Unknown]
  - Macular fibrosis [Unknown]
  - Visual acuity reduced [Recovering/Resolving]
  - Cataract [Unknown]
  - Tachyphylaxis [Unknown]
